FAERS Safety Report 5707208-3 (Version None)
Quarter: 2008Q2

REPORT INFORMATION
  Report Type: 
  Country: None (occurrence: None)
  Receive Date: 20080415
  Receipt Date: 20080415
  Transmission Date: 20081010
  Serious: Yes (Hospitalization, Other)
  Sender: FDA-Public Use
  Company Number: None

PATIENT
  Age: 63 Year
  Sex: Male
  Weight: 80 kg

DRUGS (1)
  1. NAPROXEN [Suspect]
     Indication: PAIN
     Dosage: PO
     Route: 048
     Dates: start: 20080206, end: 20080219

REACTIONS (4)
  - ASTHENIA [None]
  - DIZZINESS [None]
  - FATIGUE [None]
  - GASTRIC HAEMORRHAGE [None]
